FAERS Safety Report 5103134-1 (Version None)
Quarter: 2006Q3

REPORT INFORMATION
  Report Type: 
  Country: None (occurrence: None)
  Receive Date: 20060908
  Receipt Date: 20060828
  Transmission Date: 20061208
  Serious: Yes (Hospitalization, Other)
  Sender: FDA-Public Use
  Company Number: 2006086150

PATIENT
  Age: 78 Year
  Sex: Male
  Weight: 76.5 kg

DRUGS (6)
  1. SUTENT [Suspect]
     Indication: GASTROINTESTINAL STROMAL TUMOUR
     Dosage: SEE IMAGE, ORAL
     Route: 048
     Dates: start: 20051115, end: 20051212
  2. SUTENT [Suspect]
     Indication: GASTROINTESTINAL STROMAL TUMOUR
     Dosage: SEE IMAGE, ORAL
     Route: 048
     Dates: start: 20051227, end: 20060125
  3. SUTENT [Suspect]
     Indication: GASTROINTESTINAL STROMAL TUMOUR
     Dosage: SEE IMAGE, ORAL
     Route: 048
     Dates: start: 20060207, end: 20060306
  4. SUTENT [Suspect]
     Indication: GASTROINTESTINAL STROMAL TUMOUR
     Dosage: SEE IMAGE, ORAL
     Route: 048
     Dates: start: 20060321, end: 20060417
  5. SUTENT [Suspect]
     Indication: GASTROINTESTINAL STROMAL TUMOUR
     Dosage: SEE IMAGE, ORAL
     Route: 048
     Dates: start: 20060502, end: 20060529
  6. SUTENT [Suspect]
     Indication: GASTROINTESTINAL STROMAL TUMOUR
     Dosage: SEE IMAGE, ORAL
     Route: 048
     Dates: start: 20060613

REACTIONS (6)
  - ANAEMIA [None]
  - BRONCHOPNEUMONIA [None]
  - DEHYDRATION [None]
  - PALMAR-PLANTAR ERYTHRODYSAESTHESIA SYNDROME [None]
  - PNEUMONIA [None]
  - STOMATITIS [None]
